FAERS Safety Report 9270968 (Version 1)
Quarter: 2013Q2

REPORT INFORMATION
  Report Type: Spontaneous
  Country: IT (occurrence: IT)
  Receive Date: 20130506
  Receipt Date: 20130506
  Transmission Date: 20140414
  Serious: Yes (Other)
  Sender: FDA-Public Use
  Company Number: IT-ROCHE-1217673

PATIENT
  Age: 53 Year
  Sex: Female

DRUGS (1)
  1. BONVIVA [Suspect]
     Indication: OSTEOPOROSIS
     Route: 065

REACTIONS (5)
  - Oesophageal pain [Unknown]
  - Eye pain [Unknown]
  - Chest pain [Unknown]
  - Musculoskeletal pain [Unknown]
  - Osteonecrosis [Unknown]
